FAERS Safety Report 25495145 (Version 1)
Quarter: 2025Q2

REPORT INFORMATION
  Report Type: Report from Study
  Country: US (occurrence: US)
  Receive Date: 20250630
  Receipt Date: 20250630
  Transmission Date: 20250717
  Serious: No
  Sender: SANDOZ
  Company Number: US-SANDOZ-SDZ2025US019121

PATIENT
  Age: 15 Year
  Sex: Male

DRUGS (4)
  1. OMNITROPE [Suspect]
     Active Substance: SOMATROPIN
     Dosage: 1.4 MG, QD
     Route: 058
     Dates: start: 20240520
  2. OMNITROPE [Suspect]
     Active Substance: SOMATROPIN
     Dosage: 1.4 MG, QD
     Route: 058
     Dates: start: 20240520
  3. OMNITROPE [Suspect]
     Active Substance: SOMATROPIN
     Indication: Hypopituitarism
     Dosage: 1.4 MG, QD (OMNITROPE 10 MG / 1.5 ML SOLUTION FOR INJECTION)
     Route: 065
  4. OMNITROPE [Suspect]
     Active Substance: SOMATROPIN
     Indication: Hypopituitarism
     Dosage: 1.4 MG, QD (OMNITROPE 10 MG / 1.5 ML SOLUTION FOR INJECTION)
     Route: 065

REACTIONS (2)
  - Product storage error [Unknown]
  - Device breakage [Unknown]

NARRATIVE: CASE EVENT DATE: 20250507
